FAERS Safety Report 11142412 (Version 2)
Quarter: 2015Q2

REPORT INFORMATION
  Report Type: Report from Study
  Country: CA (occurrence: CA)
  Receive Date: 20150527
  Receipt Date: 20150619
  Transmission Date: 20150821
  Serious: Yes (Other)
  Sender: FDA-Public Use
  Company Number: PHHY2014CA161770

PATIENT
  Sex: Female

DRUGS (3)
  1. SANDOSTATIN LAR DEPOT [Suspect]
     Active Substance: OCTREOTIDE ACETATE
     Indication: METASTASIS
  2. SANDOSTATIN LAR DEPOT [Suspect]
     Active Substance: OCTREOTIDE ACETATE
     Indication: CERVIX CARCINOMA
     Dosage: 30 MG, EVERY 26 DAYS
     Route: 030
     Dates: start: 20141106
  3. SANDOSTATIN LAR DEPOT [Suspect]
     Active Substance: OCTREOTIDE ACETATE
     Indication: INTESTINAL OBSTRUCTION

REACTIONS (15)
  - Limb discomfort [Unknown]
  - Body temperature decreased [Unknown]
  - Mobility decreased [Unknown]
  - Oedema peripheral [Unknown]
  - Syringe issue [Unknown]
  - General physical health deterioration [Not Recovered/Not Resolved]
  - Muscular weakness [Unknown]
  - Pain in extremity [Unknown]
  - Fatigue [Unknown]
  - Lymphoedema [Unknown]
  - Skin discolouration [Unknown]
  - Underdose [Unknown]
  - Asthenia [Unknown]
  - Weight decreased [Unknown]
  - Off label use [Unknown]
